FAERS Safety Report 24109524 (Version 1)
Quarter: 2024Q3

REPORT INFORMATION
  Report Type: Spontaneous
  Country: CN (occurrence: CN)
  Receive Date: 20240718
  Receipt Date: 20240718
  Transmission Date: 20241016
  Serious: Yes (Other)
  Sender: BAYER
  Company Number: CN-BAYER-2024A101258

PATIENT
  Age: 79 Year
  Sex: Female
  Weight: 62 kg

DRUGS (3)
  1. GLUCOBAY [Suspect]
     Active Substance: ACARBOSE
     Indication: Dizziness
     Dosage: 50 MG, TID
     Route: 048
     Dates: start: 20240628, end: 20240703
  2. ATORVASTATIN CALCIUM [Suspect]
     Active Substance: ATORVASTATIN CALCIUM
     Indication: Dizziness
     Dosage: 20 MG, QD
     Route: 048
     Dates: start: 20240626, end: 20240703
  3. HERBALS [Suspect]
     Active Substance: HERBALS
     Indication: Dizziness
     Dosage: 1 DF, TID
     Route: 048
     Dates: start: 20240626, end: 20240703

REACTIONS (2)
  - Drug-induced liver injury [Recovering/Resolving]
  - Off label use [None]

NARRATIVE: CASE EVENT DATE: 20240628
